FAERS Safety Report 6038327-2 (Version None)
Quarter: 2009Q1

REPORT INFORMATION
  Report Type: 
  Country: None (occurrence: None)
  Receive Date: 20090115
  Receipt Date: 20090105
  Transmission Date: 20090719
  Serious: Yes (Hospitalization, Other)
  Sender: FDA-Public Use
  Company Number: DE-WYE-H07624809

PATIENT
  Sex: Male

DRUGS (1)
  1. CORDAREX [Suspect]
     Dosage: HIGH DOSE
     Dates: start: 20081209, end: 20081222

REACTIONS (1)
  - LUNG NEOPLASM MALIGNANT [None]
